FAERS Safety Report 21555365 (Version 2)
Quarter: 2022Q4

REPORT INFORMATION
  Report Type: Spontaneous
  Country: US (occurrence: US)
  Receive Date: 20221104
  Receipt Date: 20221119
  Transmission Date: 20230112
  Serious: Yes (Life-Threatening, Hospitalization)
  Sender: FDA-Public Use
  Company Number: US-TEVA-2022-US-2822767

PATIENT
  Age: 68 Year
  Sex: Male

DRUGS (1)
  1. WARFARIN [Suspect]
     Active Substance: WARFARIN
     Indication: Atrial fibrillation
     Route: 065

REACTIONS (7)
  - Anticoagulation drug level above therapeutic [Recovered/Resolved]
  - Hypotension [Unknown]
  - Prothrombin time prolonged [Unknown]
  - Fibrin D dimer increased [Unknown]
  - Pericardial haemorrhage [Unknown]
  - Pericardial effusion [Unknown]
  - Coagulopathy [Unknown]
